FAERS Safety Report 14680039 (Version 2)
Quarter: 2018Q2

REPORT INFORMATION
  Report Type: Spontaneous
  Country: JP (occurrence: JP)
  Receive Date: 20180326
  Receipt Date: 20180418
  Transmission Date: 20180711
  Serious: Yes (Death, Other)
  Sender: FDA-Public Use
  Company Number: JP-JNJFOC-20180332785

PATIENT
  Age: 79 Year
  Sex: Male
  Weight: 50 kg

DRUGS (8)
  1. DUTASTERIDE. [Concomitant]
     Active Substance: DUTASTERIDE
     Route: 048
     Dates: start: 20120904, end: 20180316
  2. DIGOXIN. [Concomitant]
     Active Substance: DIGOXIN
     Route: 048
     Dates: start: 20120904, end: 20180316
  3. BLOPRESS [Concomitant]
     Active Substance: CANDESARTAN CILEXETIL
     Route: 048
     Dates: start: 20120904, end: 20180316
  4. URIEF [Concomitant]
     Active Substance: SILODOSIN
     Route: 048
     Dates: start: 20120904, end: 20180316
  5. CANDESARTAN. [Concomitant]
     Active Substance: CANDESARTAN
     Route: 065
  6. HERBESSER [Concomitant]
     Active Substance: DILTIAZEM HYDROCHLORIDE
     Route: 065
     Dates: start: 20120904, end: 20180316
  7. XARELTO [Suspect]
     Active Substance: RIVAROXABAN
     Indication: ATRIAL FIBRILLATION
     Route: 048
     Dates: start: 20160401, end: 20180316
  8. XARELTO [Suspect]
     Active Substance: RIVAROXABAN
     Indication: CEREBROVASCULAR ACCIDENT PROPHYLAXIS
     Route: 048
     Dates: start: 20160401, end: 20180316

REACTIONS (5)
  - Shock [Unknown]
  - Decreased appetite [Unknown]
  - Aortic aneurysm rupture [Fatal]
  - Haemoptysis [Unknown]
  - Oliguria [Unknown]

NARRATIVE: CASE EVENT DATE: 201802
